FAERS Safety Report 9675160 (Version 1)
Quarter: 2013Q4

REPORT INFORMATION
  Report Type: Spontaneous
  Country: US (occurrence: None)
  Receive Date: 20131105
  Receipt Date: 20131105
  Transmission Date: 20140711
  Serious: Yes (Other)
  Sender: FDA-Public Use
  Company Number: FK201304796

PATIENT
  Age: 14 Year
  Sex: Female

DRUGS (2)
  1. VALPROATE (MANUFACTURER UNKNOWN) (VALPROATE SODIUM) (VALPROATE SODIUM) [Suspect]
     Indication: PETIT MAL EPILEPSY
     Dosage: 750 MG, ADMISSION DOSE, UNKNOWN
  2. MEROPENEM [Suspect]
     Indication: LUNG INFECTION

REACTIONS (2)
  - Petit mal epilepsy [None]
  - Drug interaction [None]
